FAERS Safety Report 5730427-7 (Version None)
Quarter: 2008Q2

REPORT INFORMATION
  Report Type: 
  Country: None (occurrence: None)
  Receive Date: 20080505
  Receipt Date: 20080505
  Transmission Date: 20081010
  Serious: Yes (Death, Life-Threatening, Hospitalization, Other)
  Sender: FDA-Public Use
  Company Number: None

PATIENT
  Age: 58 Year
  Sex: Female
  Weight: 87.7 kg

DRUGS (2)
  1. VANCOMYCIN [Suspect]
     Indication: STAPHYLOCOCCAL INFECTION
     Dates: start: 20080328, end: 20080418
  2. RIFAMPIN [Suspect]
     Indication: STAPHYLOCOCCAL INFECTION
     Dates: start: 20080328, end: 20080418

REACTIONS (11)
  - CARDIO-RESPIRATORY ARREST [None]
  - DEHYDRATION [None]
  - DIARRHOEA [None]
  - HYPOKALAEMIA [None]
  - HYPOTENSION [None]
  - METABOLIC ACIDOSIS [None]
  - MUCOSAL HAEMORRHAGE [None]
  - NAUSEA [None]
  - PYREXIA [None]
  - RASH GENERALISED [None]
  - VOMITING [None]
